FAERS Safety Report 7630461-6 (Version None)
Quarter: 2011Q3

REPORT INFORMATION
  Report Type: 
  Country: None (occurrence: None)
  Receive Date: 20110722
  Receipt Date: 20110713
  Transmission Date: 20111222
  Serious: Yes (Hospitalization)
  Sender: FDA-Public Use
  Company Number: US-US-EMD SERONO, INC.-7071099

PATIENT
  Sex: Female
  Weight: 70 kg

DRUGS (3)
  1. UNSPECIFIED BLOOD PRESSURE PILLS [Concomitant]
     Indication: HYPERTENSION
  2. REBIF [Suspect]
     Indication: MULTIPLE SCLEROSIS
     Route: 058
     Dates: start: 20050908
  3. UNSPECIFIED CHOLESTEROL PILL [Concomitant]

REACTIONS (4)
  - HYPERTENSION [None]
  - STRESS [None]
  - TRANSIENT ISCHAEMIC ATTACK [None]
  - MULTIPLE SCLEROSIS RELAPSE [None]
